FAERS Safety Report 23518405 (Version 1)
Quarter: 2024Q1

REPORT INFORMATION
  Report Type: Spontaneous
  Country: US (occurrence: US)
  Receive Date: 20240213
  Receipt Date: 20240213
  Transmission Date: 20240410
  Serious: Yes (Death, Hospitalization, Other)
  Sender: FDA-Public Use
  Company Number: US-ELI_LILLY_AND_COMPANY-US202402005547

PATIENT
  Age: 53 Year
  Sex: Female

DRUGS (2)
  1. VERZENIO [Suspect]
     Active Substance: ABEMACICLIB
     Indication: Breast cancer
     Dosage: 150 MG, UNKNOWN
     Route: 065
  2. VERZENIO [Suspect]
     Active Substance: ABEMACICLIB
     Dosage: 150 MG, UNKNOWN
     Route: 065

REACTIONS (7)
  - Death [Fatal]
  - Cardiogenic shock [Unknown]
  - Pneumonia [Unknown]
  - Influenza [Unknown]
  - Dyspnoea [Unknown]
  - Renal failure [Unknown]
  - Swelling [Unknown]

NARRATIVE: CASE EVENT DATE: 20240117
